FAERS Safety Report 11684054 (Version 1)
Quarter: 2015Q4

REPORT INFORMATION
  Report Type: Report from Study
  Country: NL (occurrence: NL)
  Receive Date: 20151029
  Receipt Date: 20151029
  Transmission Date: 20160304
  Serious: Yes (Hospitalization)
  Sender: FDA-Public Use
  Company Number: NL-BAYER-2015-435968

PATIENT
  Age: 61 Year
  Sex: Female
  Weight: 59 kg

DRUGS (2)
  1. FURABID [Suspect]
     Active Substance: NITROFURANTOIN
     Dosage: UNK
     Dates: start: 20150927, end: 20150929
  2. STIVARGA [Suspect]
     Active Substance: REGORAFENIB
     Indication: COLORECTAL CANCER METASTATIC
     Dosage: 4 TABLETS 40 MG (160 MG)
     Route: 048
     Dates: start: 20150917, end: 20150929

REACTIONS (2)
  - Pyrexia [Recovered/Resolved]
  - Pneumonia [Recovering/Resolving]

NARRATIVE: CASE EVENT DATE: 20150929
